FAERS Safety Report 8336352-X (Version None)
Quarter: 2012Q2

REPORT INFORMATION
  Report Type: 
  Country: None (occurrence: None)
  Receive Date: 20120504
  Receipt Date: 20120426
  Transmission Date: 20120825
  Serious: Yes (Hospitalization)
  Sender: FDA-Public Use
  Company Number: US-BAYER-2011-082364

PATIENT
  Age: 27 Year
  Sex: Female
  Weight: 96.599 kg

DRUGS (5)
  1. YAZ [Suspect]
     Indication: MENORRHAGIA
  2. KAPIDEX [Concomitant]
     Indication: ABDOMINAL PAIN
     Dosage: UNK, 1 TABLET DAILY
     Dates: start: 20090903
  3. PRILOSEC [Concomitant]
     Indication: GASTROOESOPHAGEAL REFLUX DISEASE
     Dosage: UNK, 1 TABLET DAILY
     Dates: start: 20090903, end: 20090908
  4. YAZ [Suspect]
     Indication: PREMENSTRUAL SYNDROME
     Dosage: UNK
     Dates: start: 20090629, end: 20090908
  5. IBUPROFEN [Concomitant]
     Indication: ABDOMINAL PAIN
     Dosage: UNK
     Dates: start: 20090903, end: 20090908

REACTIONS (7)
  - ABDOMINAL PAIN [None]
  - GENERAL PHYSICAL HEALTH DETERIORATION [None]
  - ANXIETY [None]
  - VOMITING [None]
  - EMOTIONAL DISTRESS [None]
  - SPLENIC VEIN THROMBOSIS [None]
  - PORTAL VEIN THROMBOSIS [None]
